FAERS Safety Report 5827067-8 (Version None)
Quarter: 2008Q3

REPORT INFORMATION
  Report Type: 
  Country: None (occurrence: None)
  Receive Date: 20080730
  Receipt Date: 20080718
  Transmission Date: 20090109
  Serious: Yes (Other)
  Sender: FDA-Public Use
  Company Number: B0502651A

PATIENT
  Sex: Male

DRUGS (4)
  1. SEROXAT [Suspect]
     Route: 065
     Dates: start: 20010101
  2. CIPRALEX [Concomitant]
     Dates: start: 20030101
  3. DIAZEPAM [Concomitant]
     Indication: ANXIETY
     Dates: start: 20021122
  4. TEMAZEPAM [Concomitant]
     Indication: ANXIETY
     Dates: start: 20030701

REACTIONS (13)
  - ABNORMAL BEHAVIOUR [None]
  - AFFECT LABILITY [None]
  - AGITATION [None]
  - AMNESIA [None]
  - ANGER [None]
  - ANXIETY [None]
  - DRUG WITHDRAWAL SYNDROME [None]
  - EMOTIONAL DISTRESS [None]
  - INTENTIONAL SELF-INJURY [None]
  - LOSS OF LIBIDO [None]
  - MANIA [None]
  - PANIC DISORDER [None]
  - SUICIDAL IDEATION [None]
